FAERS Safety Report 12797928 (Version 1)
Quarter: 2016Q3

REPORT INFORMATION
  Report Type: Spontaneous
  Country: US (occurrence: US)
  Receive Date: 20160929
  Receipt Date: 20160929
  Transmission Date: 20161109
  Serious: Yes (Hospitalization)
  Sender: FDA-Public Use
  Company Number: None

PATIENT
  Age: 43 Year
  Sex: Male
  Weight: 72 kg

DRUGS (6)
  1. TYLENOL [Concomitant]
     Active Substance: ACETAMINOPHEN
  2. KEPPRA [Concomitant]
     Active Substance: LEVETIRACETAM
  3. DONNATAL [Concomitant]
     Active Substance: ATROPINE SULFATE\HYOSCYAMINE SULFATE\PHENOBARBITAL\SCOPOLAMINE HYDROBROMIDE
  4. HYOSCYAMINE SULFATE SUBLINGUAL [Suspect]
     Active Substance: HYOSCYAMINE SULFATE
     Indication: ABDOMINAL PAIN
     Dosage: ?          QUANTITY:15 TABLET(S);?
     Route: 060
     Dates: start: 20160405, end: 20160430
  5. KLONOPIN [Concomitant]
     Active Substance: CLONAZEPAM
  6. PROZAC [Concomitant]
     Active Substance: FLUOXETINE HYDROCHLORIDE

REACTIONS (6)
  - Loss of consciousness [None]
  - Incoherent [None]
  - Mydriasis [None]
  - Seizure [None]
  - Fall [None]
  - Product quality issue [None]

NARRATIVE: CASE EVENT DATE: 20160423
